FAERS Safety Report 6066622-X (Version None)
Quarter: 2009Q1

REPORT INFORMATION
  Report Type: 
  Country: None (occurrence: None)
  Receive Date: 20090205
  Receipt Date: 20090203
  Transmission Date: 20090719
  Serious: Yes (Disabling, Other)
  Sender: FDA-Public Use
  Company Number: B0557485A

PATIENT
  Age: 84 Year
  Sex: Male

DRUGS (7)
  1. ARTIST [Suspect]
     Indication: CARDIAC FAILURE CHRONIC
     Dosage: 2.5MG PER DAY
     Route: 048
     Dates: start: 20080826, end: 20081209
  2. DIOVAN [Suspect]
     Indication: HYPERTENSION
     Dosage: 80MG PER DAY
     Route: 048
     Dates: start: 20080826, end: 20081203
  3. NOVORAPID [Suspect]
     Indication: DIABETES MELLITUS
     Route: 058
     Dates: end: 20081127
  4. NOVOLIN R [Suspect]
     Indication: DIABETES MELLITUS
     Route: 058
     Dates: start: 20081128
  5. WARFARIN [Concomitant]
     Indication: DRUG USE FOR UNKNOWN INDICATION
     Route: 065
  6. GASTER [Concomitant]
     Indication: DRUG USE FOR UNKNOWN INDICATION
     Route: 065
  7. AMLODIPINE [Concomitant]
     Dates: start: 20081204

REACTIONS (8)
  - ALTERED STATE OF CONSCIOUSNESS [None]
  - BRADYCARDIA [None]
  - CEREBRAL ARTERY EMBOLISM [None]
  - DRUG INTERACTION [None]
  - FALL [None]
  - HYPOGLYCAEMIA [None]
  - PARALYSIS [None]
  - SUBDURAL HAEMATOMA [None]
